FAERS Safety Report 4707562-5 (Version None)
Quarter: 2005Q3

REPORT INFORMATION
  Report Type: 
  Country: None (occurrence: None)
  Receive Date: 20050706
  Receipt Date: 20050622
  Transmission Date: 20060218
  Serious: Yes (Hospitalization)
  Sender: FDA-Public Use
  Company Number: JP-JNJFOC-20050504920

PATIENT
  Age: 65 Year
  Sex: Female

DRUGS (7)
  1. TAVANIC [Suspect]
     Indication: BRONCHOPNEUMONIA
     Route: 049
     Dates: start: 20050412, end: 20050414
  2. JODID [Concomitant]
     Route: 049
  3. ASPIRIN [Concomitant]
     Route: 049
  4. URSO FALK [Concomitant]
     Route: 049
  5. BUDESONID [Concomitant]
     Route: 055
  6. SALBUTAMOL [Concomitant]
  7. UNKNOWN DRUG [Concomitant]
     Route: 049

REACTIONS (4)
  - FACIAL NEURALGIA [None]
  - INDURATION [None]
  - PARAESTHESIA [None]
  - TEMPORAL ARTERITIS [None]
